FAERS Safety Report 18622988 (Version 1)
Quarter: 2020Q4

REPORT INFORMATION
  Report Type: Spontaneous
  Country: US (occurrence: US)
  Receive Date: 20201216
  Receipt Date: 20201216
  Transmission Date: 20210114
  Serious: No
  Sender: FDA-Public Use
  Company Number: None

PATIENT
  Age: 55 Year
  Sex: Female
  Weight: 57.5 kg

DRUGS (1)
  1. PACLITAXEL. [Suspect]
     Active Substance: PACLITAXEL
     Indication: OVARIAN CANCER
     Route: 041
     Dates: start: 20201106

REACTIONS (6)
  - Chest discomfort [None]
  - Erythema [None]
  - Heart rate decreased [None]
  - Infusion related reaction [None]
  - Swelling face [None]
  - Headache [None]

NARRATIVE: CASE EVENT DATE: 20201106
